FAERS Safety Report 24231765 (Version 1)
Quarter: 2024Q3

REPORT INFORMATION
  Report Type: Spontaneous
  Country: FR (occurrence: FR)
  Receive Date: 20240821
  Receipt Date: 20240821
  Transmission Date: 20241016
  Serious: Yes (Death, Other)
  Sender: AUROBINDO
  Company Number: FR-AFSSAPS-CF2024000406

PATIENT
  Age: 46 Year
  Sex: Male

DRUGS (7)
  1. FLUCONAZOLE [Suspect]
     Active Substance: FLUCONAZOLE
     Indication: Fungal infection
     Dosage: 50 MILLIGRAM (1/J)
     Route: 048
     Dates: start: 20240625
  2. ZOPICLONE [Suspect]
     Active Substance: ZOPICLONE
     Indication: Insomnia
     Dosage: UNK 3.75 THEN 7.5 MG (FROM JULY 3, 2024), SCORED FILM-COATED TABLET, 1 PER DAY
     Route: 048
     Dates: start: 20240611
  3. CEFTRIAXONE [Suspect]
     Active Substance: CEFTRIAXONE\CEFTRIAXONE SODIUM
     Indication: Antibiotic prophylaxis
     Dosage: 1 GRAM (1G*2 IV)
     Route: 042
     Dates: start: 20240709
  4. TROPATEPINE HYDROCHLORIDE [Suspect]
     Active Substance: TROPATEPINE HYDROCHLORIDE
     Indication: Parkinsonism
     Dosage: 10 MILLIGRAM (BETWEEN 0.5 AND 3 TABS PER DAY)
     Route: 048
     Dates: start: 20240611
  5. ASTEMIZOLE [Suspect]
     Active Substance: ASTEMIZOLE
     Indication: Anxiety
     Dosage: 1 MILLIGRAM (BETWEEN 1 AND 4.5 CP PER DAY)
     Route: 048
     Dates: start: 20240620
  6. TRIMEPRAZINE [Suspect]
     Active Substance: TRIMEPRAZINE
     Indication: Sedation
     Dosage: 5 MILLIGRAM (PRIZE UNIQUE)
     Route: 048
     Dates: start: 20240708, end: 20240708
  7. ALFUZOSIN [Suspect]
     Active Substance: ALFUZOSIN
     Indication: Benign prostatic hyperplasia
     Dosage: 2.5 MILLIGRAM (BETWEEN 1 AND 3 TABLETS PER DAY.)
     Route: 048
     Dates: start: 20240620

REACTIONS (1)
  - Death [Fatal]

NARRATIVE: CASE EVENT DATE: 20240710
